FAERS Safety Report 20757864 (Version 1)
Quarter: 2022Q2

REPORT INFORMATION
  Report Type: Spontaneous
  Country: CL (occurrence: CL)
  Receive Date: 20220427
  Receipt Date: 20220427
  Transmission Date: 20220721
  Serious: No
  Sender: FDA-Public Use
  Company Number: CL-PFIZER INC-202200573638

PATIENT
  Age: 8 Year
  Sex: Male

DRUGS (1)
  1. GENOTROPIN [Suspect]
     Active Substance: SOMATROPIN
     Dosage: 6 ON FRIDAY, SATURDAY AND SUNDAY AND 8 ON MONDAY, TUESDAY, WEDNESDAY AND THURSDAY
     Dates: start: 2021

REACTIONS (3)
  - Device mechanical issue [Unknown]
  - Device breakage [Unknown]
  - Wrong technique in device usage process [Unknown]

NARRATIVE: CASE EVENT DATE: 20220412
